FAERS Safety Report 5346031-9 (Version None)
Quarter: 2007Q2

REPORT INFORMATION
  Report Type: 
  Country: None (occurrence: None)
  Receive Date: 20070605
  Receipt Date: 20070525
  Transmission Date: 20071010
  Serious: Yes (Hospitalization, Other)
  Sender: FDA-Public Use
  Company Number: US-ROCHE-495111

PATIENT
  Age: 39 Year
  Sex: Male
  Weight: 106.6 kg

DRUGS (6)
  1. PEGASYS [Suspect]
     Route: 058
     Dates: start: 20061001, end: 20070313
  2. PEGASYS [Suspect]
     Route: 058
     Dates: start: 20070403, end: 20070412
  3. RIBAVIRIN [Suspect]
     Route: 058
     Dates: start: 20061001, end: 20070313
  4. RIBAVIRIN [Suspect]
     Dosage: DRUG NAME REPORTED AS 'CO-PEGASYS.'
     Route: 058
     Dates: start: 20070403, end: 20070412
  5. SOMA [Concomitant]
     Dosage: THE PATIENT TAKES SOME 350 MG THREE TIMES DAILY AS NEEDED.
     Route: 048
  6. VICODIN [Concomitant]
     Dosage: THE PATIENT TAKES ^VICODIN 5/325 EVERY 4 HOURS AS NEEDED FOR PAIN.^
     Route: 048

REACTIONS (5)
  - OESOPHAGEAL VARICES HAEMORRHAGE [None]
  - PANCYTOPENIA [None]
  - PORTAL HYPERTENSIVE GASTROPATHY [None]
  - PRURITUS [None]
  - PYREXIA [None]
